FAERS Safety Report 8002449-7 (Version None)
Quarter: 2011Q4

REPORT INFORMATION
  Report Type: 
  Country: None (occurrence: None)
  Receive Date: 20111222
  Receipt Date: 20111213
  Transmission Date: 20120403
  Serious: Yes (Hospitalization)
  Sender: FDA-Public Use
  Company Number: US-BAYER-2011-119827

PATIENT
  Age: 34 Year
  Sex: Female

DRUGS (2)
  1. BEYAZ [Suspect]
     Dosage: UNK
     Route: 048
     Dates: start: 20111006, end: 20111201
  2. MIRENA [Suspect]
     Dosage: UNK
     Dates: end: 20111006

REACTIONS (1)
  - PULMONARY EMBOLISM [None]
